FAERS Safety Report 23675280 (Version 2)
Quarter: 2024Q2

REPORT INFORMATION
  Report Type: Spontaneous
  Country: CN (occurrence: CN)
  Receive Date: 20240327
  Receipt Date: 20240416
  Transmission Date: 20240716
  Serious: Yes (Hospitalization, Other)
  Sender: FDA-Public Use
  Company Number: CN-Reliance-000386

PATIENT
  Age: 73 Year
  Sex: Female

DRUGS (3)
  1. CAPECITABINE [Suspect]
     Active Substance: CAPECITABINE
     Indication: Colorectal cancer
     Dosage: 1.5 G ORALLY TWICE DAILY ON DAYS 1 - 14
     Route: 048
     Dates: start: 202110, end: 202202
  2. OXALIPLATIN [Suspect]
     Active Substance: OXALIPLATIN
     Indication: Colorectal cancer
     Dosage: 6 CYCLES (190 MG ON DAY 1)
     Dates: start: 202110, end: 202202
  3. GRANULOCYTE COLONY STIMULATING FACT [Concomitant]
     Indication: Myelosuppression

REACTIONS (2)
  - Acute myeloid leukaemia [Recovering/Resolving]
  - Myelosuppression [Recovered/Resolved]

NARRATIVE: CASE EVENT DATE: 20230401
